FAERS Safety Report 5275904-0 (Version None)
Quarter: 2007Q1

REPORT INFORMATION
  Report Type: 
  Country: None (occurrence: None)
  Receive Date: 20070326
  Receipt Date: 20070316
  Transmission Date: 20070707
  Serious: Yes (Hospitalization)
  Sender: FDA-Public Use
  Company Number: US-MERCK-0702USA04444

PATIENT
  Age: 63 Year
  Sex: Male

DRUGS (12)
  1. ZETIA [Suspect]
     Indication: BLOOD CHOLESTEROL INCREASED
     Route: 048
     Dates: start: 20050401, end: 20070225
  2. BUPROPION HYDROCHLORIDE [Concomitant]
     Route: 065
  3. BUSPIRONE HYDROCHLORIDE [Concomitant]
     Route: 065
  4. [THERAPY UNSPECIFIED] [Concomitant]
     Route: 065
  5. FENOFIBRATE [Concomitant]
     Route: 065
  6. COZAAR [Concomitant]
     Route: 048
  7. MAGNESIUM OXIDE [Concomitant]
     Route: 065
  8. METOPROLOL [Concomitant]
     Route: 065
  9. OMEPRAZOLE [Concomitant]
     Route: 065
  10. PROPOXYPHENE HYDROCHLORIDE [Concomitant]
     Route: 065
  11. TERAZOSIN HYDROCHLORIDE [Concomitant]
     Route: 065
  12. THIAMINE HYDROCHLORIDE [Concomitant]
     Route: 065

REACTIONS (5)
  - CHEST PAIN [None]
  - DYSPEPSIA [None]
  - FATIGUE [None]
  - HEART RATE DECREASED [None]
  - MUSCULAR WEAKNESS [None]
